FAERS Safety Report 7550986-1 (Version None)
Quarter: 2011Q2

REPORT INFORMATION
  Report Type: 
  Country: None (occurrence: None)
  Receive Date: 20110616
  Receipt Date: 20110601
  Transmission Date: 20111010
  Serious: Yes (Death, Hospitalization, Other)
  Sender: FDA-Public Use
  Company Number: US-JNJFOC-NSADSS2003007578

PATIENT
  Sex: Male
  Weight: 63.5 kg

DRUGS (23)
  1. REMICADE [Suspect]
     Route: 041
     Dates: start: 20000203
  2. PRILOSEC [Concomitant]
     Dates: start: 20010801, end: 20030101
  3. REMICADE [Suspect]
     Route: 041
     Dates: start: 20021115
  4. AZATHIOPRINE [Concomitant]
     Indication: CROHN'S DISEASE
     Route: 048
     Dates: start: 20010201, end: 20030208
  5. IMURAN [Concomitant]
     Dates: end: 20030208
  6. REMICADE [Suspect]
     Route: 041
     Dates: start: 19990901
  7. REMICADE [Suspect]
     Route: 041
     Dates: start: 20020621
  8. REMICADE [Suspect]
     Route: 041
     Dates: start: 20020222
  9. MERCAPTOPURINE [Suspect]
     Dosage: 25MG AM, 25MG PM
     Dates: start: 19980501
  10. MERCAPTOPURINE [Suspect]
     Dosage: 25MG AM, 25MG PM
     Dates: start: 19971201
  11. FOSAMAX [Concomitant]
     Route: 048
     Dates: start: 20021103, end: 20030201
  12. STEROIDS [Concomitant]
     Dates: end: 20020301
  13. REMICADE [Suspect]
     Route: 041
     Dates: start: 20000616
  14. REMICADE [Suspect]
     Indication: CROHN'S DISEASE
     Route: 041
     Dates: start: 20000817
  15. REMICADE [Suspect]
     Route: 041
     Dates: start: 20020927
  16. REMICADE [Suspect]
     Route: 041
     Dates: start: 20030106
  17. REMICADE [Suspect]
     Route: 041
     Dates: start: 19991203
  18. REMICADE [Suspect]
     Route: 041
     Dates: start: 20001105
  19. REMICADE [Suspect]
     Route: 041
     Dates: start: 20020809
  20. MERCAPTOPURINE [Suspect]
     Indication: CROHN'S DISEASE
     Dosage: 25MG AM, 25MG PM
     Dates: start: 19991101, end: 20010201
  21. PREDNISONE [Concomitant]
  22. REMICADE [Suspect]
     Route: 041
     Dates: start: 20020211
  23. MERCAPTOPURINE [Suspect]
     Dosage: 25MG AM, 25MG PM
     Dates: start: 19970701

REACTIONS (13)
  - BACTERIAL INFECTION [None]
  - FATIGUE [None]
  - LARYNGITIS [None]
  - SINUS HEADACHE [None]
  - LEUKOCYTOCLASTIC VASCULITIS [None]
  - CELLULITIS [None]
  - PYREXIA [None]
  - VISION BLURRED [None]
  - THIRST [None]
  - EPSTEIN-BARR VIRUS INFECTION [None]
  - NIGHT SWEATS [None]
  - PHARYNGITIS [None]
  - HEPATOSPLENIC T-CELL LYMPHOMA [None]
